FAERS Safety Report 23425997 (Version 1)
Quarter: 2024Q1

REPORT INFORMATION
  Report Type: Spontaneous
  Country: US (occurrence: US)
  Receive Date: 20240122
  Receipt Date: 20240122
  Transmission Date: 20240410
  Serious: Yes (Hospitalization, Other)
  Sender: FDA-Public Use
  Company Number: US-IPCA LABORATORIES LIMITED-IPC-2024-US-000089

PATIENT

DRUGS (6)
  1. GABAPENTIN [Suspect]
     Active Substance: GABAPENTIN
     Indication: Product used for unknown indication
     Dosage: APPROXIMATELY 9 GRAM
     Route: 048
  2. QUETIAPINE [Suspect]
     Active Substance: QUETIAPINE
     Indication: Product used for unknown indication
     Dosage: APPROXIMATELY 6 GRAM
     Route: 048
  3. CLONIDINE [Suspect]
     Active Substance: CLONIDINE
     Indication: Product used for unknown indication
     Dosage: APPROXIMATELY 6 MILLIGRAM
     Route: 048
  4. FLUOXETINE [Suspect]
     Active Substance: FLUOXETINE HYDROCHLORIDE
     Indication: Product used for unknown indication
     Dosage: 1.2 GRAM
     Route: 048
  5. BUPROPION [Suspect]
     Active Substance: BUPROPION
     Indication: Product used for unknown indication
     Dosage: APPROXIMATELY 13.5 GRAM
     Route: 048
  6. PHENOBARBITAL [Suspect]
     Active Substance: PHENOBARBITAL
     Dosage: UNK
     Route: 065

REACTIONS (20)
  - Seizure [Recovering/Resolving]
  - Electrocardiogram QT prolonged [Recovering/Resolving]
  - Electrocardiogram QRS complex prolonged [Recovering/Resolving]
  - Left ventricular failure [Recovering/Resolving]
  - Serotonin syndrome [Recovering/Resolving]
  - Acute respiratory distress syndrome [Recovering/Resolving]
  - Ventricular hypokinesia [Recovering/Resolving]
  - Respiratory failure [Recovering/Resolving]
  - Normochromic anaemia [Recovering/Resolving]
  - Acidosis [Recovering/Resolving]
  - Condition aggravated [Recovering/Resolving]
  - Cardiovascular disorder [Recovering/Resolving]
  - Myoclonus [Recovering/Resolving]
  - Hypotonia [Recovering/Resolving]
  - Haemodynamic instability [Recovering/Resolving]
  - Agitation [Recovering/Resolving]
  - Speech disorder [Recovering/Resolving]
  - Hypotension [Recovering/Resolving]
  - Toxicity to various agents [Recovering/Resolving]
  - Intentional overdose [Unknown]
